FAERS Safety Report 5719759-6 (Version None)
Quarter: 2008Q2

REPORT INFORMATION
  Report Type: 
  Country: None (occurrence: None)
  Receive Date: 20080428
  Receipt Date: 20080418
  Transmission Date: 20081010
  Serious: Yes (Hospitalization)
  Sender: FDA-Public Use
  Company Number: FR-WYE-G01435008

PATIENT
  Sex: Male

DRUGS (2)
  1. TAZOCILLINE [Suspect]
     Indication: OSTEITIS
     Route: 042
     Dates: start: 20080312, end: 20080325
  2. NEBCIN [Suspect]
     Indication: OSTEITIS
     Route: 042
     Dates: start: 20080312, end: 20080325

REACTIONS (5)
  - CYTOLYTIC HEPATITIS [None]
  - INFUSION SITE IRRITATION [None]
  - PYREXIA [None]
  - RASH ERYTHEMATOUS [None]
  - RASH MACULO-PAPULAR [None]
